FAERS Safety Report 11691186 (Version 1)
Quarter: 2015Q4

REPORT INFORMATION
  Report Type: Spontaneous
  Country: US (occurrence: US)
  Receive Date: 20151102
  Receipt Date: 20151102
  Transmission Date: 20160304
  Serious: Yes (Other)
  Sender: FDA-Public Use
  Company Number: US-JNJFOC-20151018960

PATIENT
  Sex: Male

DRUGS (3)
  1. REMICADE [Suspect]
     Active Substance: INFLIXIMAB
     Indication: COLITIS ULCERATIVE
     Route: 042
     Dates: start: 2006
  2. PROVIGIL [Concomitant]
     Active Substance: MODAFINIL
     Route: 065
  3. PREDNISONE. [Suspect]
     Active Substance: PREDNISONE
     Indication: RASH
     Route: 065

REACTIONS (8)
  - Malaise [Unknown]
  - Defaecation urgency [Unknown]
  - Fatigue [Unknown]
  - Arthritis [Unknown]
  - Frequent bowel movements [Unknown]
  - Rash [Unknown]
  - Narcolepsy [Unknown]
  - Abdominal pain [Unknown]
